FAERS Safety Report 9707866 (Version 1)
Quarter: 2013Q4

REPORT INFORMATION
  Report Type: Spontaneous
  Country: US (occurrence: None)
  Receive Date: 20131122
  Receipt Date: 20131122
  Transmission Date: 20140711
  Serious: Yes (Other)
  Sender: FDA-Public Use
  Company Number: None

PATIENT
  Age: 72 Year
  Sex: Male
  Weight: 92.4 kg

DRUGS (2)
  1. BUTORPHANOL TARTRATE [Suspect]
     Indication: PAIN
     Dosage: 0.5MG  PRN/AS NEEDED  INTRAVENOUS
     Route: 042
     Dates: start: 20131120, end: 20131120
  2. MORPHINE [Concomitant]

REACTIONS (1)
  - Pruritus [None]
